FAERS Safety Report 18648534 (Version 1)
Quarter: 2020Q4

REPORT INFORMATION
  Report Type: Spontaneous
  Country: HR (occurrence: HR)
  Receive Date: 20201222
  Receipt Date: 20201222
  Transmission Date: 20210114
  Serious: Yes (Other)
  Sender: FDA-Public Use
  Company Number: HR-GLAXOSMITHKLINE-HR2020248733

PATIENT
  Age: 44 Year
  Sex: Female

DRUGS (2)
  1. LAMICTAL [Suspect]
     Active Substance: LAMOTRIGINE
     Indication: PRODUCT USED FOR UNKNOWN INDICATION
     Dosage: FIRST REPORTED PATIENT TOOK 4 TBL OF LAMI 150 MG, LATER REPORTED THAT PATIENT TOOK BLISTER OF LAMI
     Route: 048
     Dates: start: 202011, end: 202011
  2. SANVAL [Suspect]
     Active Substance: ZOLPIDEM TARTRATE
     Indication: PRODUCT USED FOR UNKNOWN INDICATION
     Dosage: FIRST REPORTED PATIENT TOOK 4 TBL OF LAMI 150 MG, LATER REPORTED THAT PATIENT TOOK BLISTER OF LAMI
     Route: 048
     Dates: start: 202011, end: 202011

REACTIONS (3)
  - Intentional overdose [Unknown]
  - Somnolence [Unknown]
  - Suicide attempt [Unknown]

NARRATIVE: CASE EVENT DATE: 202011
